FAERS Safety Report 4776421-4 (Version None)
Quarter: 2005Q3

REPORT INFORMATION
  Report Type: 
  Country: None (occurrence: None)
  Receive Date: 20050915
  Receipt Date: 20050906
  Transmission Date: 20060218
  Serious: Yes (Hospitalization)
  Sender: FDA-Public Use
  Company Number: 2005124572

PATIENT
  Age: 54 Year
  Sex: Male

DRUGS (6)
  1. IRINOTECAN HCL [Suspect]
     Indication: COLON CANCER
     Dosage: 180 MG/M2 (CYCLICAL)
     Dates: start: 20050802
  2. FLUOROURACIL [Concomitant]
  3. CALCIUM LEVOFOLINATE (CALCIUM LEVOFOLINATE) [Concomitant]
  4. SOLU-MEDROL [Concomitant]
  5. ZOPHREN (ONDANSETRON HYDROCHLORIDE) [Concomitant]
  6. ATROPINE [Concomitant]

REACTIONS (1)
  - PULMONARY ECHINOCOCCIASIS [None]
